FAERS Safety Report 10776838 (Version 2)
Quarter: 2016Q1

REPORT INFORMATION
  Report Type: Spontaneous
  Country: US (occurrence: US)
  Receive Date: 20150209
  Receipt Date: 20160122
  Transmission Date: 20160525
  Serious: No
  Sender: FDA-Public Use
  Company Number: US-ASTRAZENECA-2015SE10045

PATIENT
  Age: 25051 Day
  Sex: Female
  Weight: 99.8 kg

DRUGS (1)
  1. CRESTOR [Suspect]
     Active Substance: ROSUVASTATIN CALCIUM
     Indication: BLOOD CHOLESTEROL ABNORMAL
     Route: 048
     Dates: start: 201411, end: 201411

REACTIONS (11)
  - Abdominal pain [Recovered/Resolved]
  - Diarrhoea [Recovered/Resolved]
  - Calcinosis [Unknown]
  - Mobility decreased [Unknown]
  - Agitation [Not Recovered/Not Resolved]
  - Blood glucose increased [Recovering/Resolving]
  - Liver function test increased [Not Recovered/Not Resolved]
  - Malaise [Recovered/Resolved]
  - Pain [Unknown]
  - Musculoskeletal pain [Not Recovered/Not Resolved]
  - Drug ineffective [Unknown]

NARRATIVE: CASE EVENT DATE: 201411
